FAERS Safety Report 8373242-0 (Version None)
Quarter: 2012Q2

REPORT INFORMATION
  Report Type: 
  Country: None (occurrence: None)
  Receive Date: 20120521
  Receipt Date: 20120508
  Transmission Date: 20120825
  Serious: Yes (Death)
  Sender: FDA-Public Use
  Company Number: US-RB-026755-11

PATIENT
  Age: 48 Year
  Sex: Female

DRUGS (3)
  1. GUAIFENESIN [Suspect]
  2. DIPHENHYDRAMINE HCL [Suspect]
  3. CHLORPHENIRAMINE TAB [Suspect]

REACTIONS (2)
  - TOXICITY TO VARIOUS AGENTS [None]
  - COMPLETED SUICIDE [None]
